FAERS Safety Report 7657615-7 (Version None)
Quarter: 2011Q3

REPORT INFORMATION
  Report Type: 
  Country: None (occurrence: None)
  Receive Date: 20110804
  Receipt Date: 20110726
  Transmission Date: 20111222
  Serious: Yes (Other)
  Sender: FDA-Public Use
  Company Number: US-ASTRAZENECA-2011SE44773

PATIENT

DRUGS (12)
  1. COUMADIN [Concomitant]
  2. LYRICA [Concomitant]
     Route: 048
  3. PLAVIX [Concomitant]
     Route: 048
  4. LOTENSIN [Concomitant]
     Route: 048
  5. NEURONTIN [Concomitant]
     Dosage: 3 TIMES A DAY ON SLIDING SCALE
  6. NEXIUM [Suspect]
     Route: 048
  7. LIPITOR [Concomitant]
     Route: 048
  8. TRAMADOL HYDROCHLORIDE AND ACETAMINOPHEN [Concomitant]
     Dosage: 37.5/325 MILLIGRAM, 1-2 BY MOUTH EVERY 4 HOUS AS NEEDED
     Route: 048
  9. DILANTIN [Concomitant]
     Route: 048
  10. TOPROL-XL [Suspect]
     Route: 048
  11. ZOLOFT [Concomitant]
     Route: 048
  12. LYRICA [Concomitant]
     Route: 048

REACTIONS (2)
  - BACK PAIN [None]
  - CONVULSION [None]
